FAERS Safety Report 5623487-5 (Version None)
Quarter: 2008Q1

REPORT INFORMATION
  Report Type: 
  Country: None (occurrence: None)
  Receive Date: 20080212
  Receipt Date: 20080131
  Transmission Date: 20080703
  Serious: Yes (Other)
  Sender: FDA-Public Use
  Company Number: US-PFIZER INC-2008010605

PATIENT
  Sex: Female
  Weight: 77.272 kg

DRUGS (5)
  1. CHANTIX [Suspect]
     Indication: SMOKING CESSATION THERAPY
     Dates: start: 20080120, end: 20080123
  2. COZAAR [Concomitant]
  3. WELCHOL [Concomitant]
     Indication: BLOOD CHOLESTEROL INCREASED
  4. ALL OTHER THERAPEUTIC PRODUCTS [Concomitant]
  5. FISH OIL [Concomitant]

REACTIONS (2)
  - HEART RATE INCREASED [None]
  - PALPITATIONS [None]
